FAERS Safety Report 9240475 (Version 1)
Quarter: 2013Q2

REPORT INFORMATION
  Report Type: Spontaneous
  Country: US (occurrence: US)
  Receive Date: 20130418
  Receipt Date: 20130418
  Transmission Date: 20140414
  Serious: Yes (Other)
  Sender: FDA-Public Use
  Company Number: US-SANOFI-AVENTIS-2012SA061097

PATIENT
  Sex: Male

DRUGS (1)
  1. LOVENOX [Suspect]
     Indication: THROMBOSIS
     Dosage: INITIAL STARTING DOSE IS AT 1.5MG, INCREASED DOSE BY 20%, DOSAGE IS 1.8MG/KG
     Route: 058

REACTIONS (2)
  - Anticoagulation drug level below therapeutic [Unknown]
  - Off label use [Unknown]
